FAERS Safety Report 10040418 (Version 1)
Quarter: 2014Q1

REPORT INFORMATION
  Report Type: Spontaneous
  Country: US (occurrence: US)
  Receive Date: 20140327
  Receipt Date: 20140327
  Transmission Date: 20141002
  Serious: No
  Sender: FDA-Public Use
  Company Number: US-BIOGENIDEC-2014BI028156

PATIENT
  Age: 49 Year
  Sex: Male

DRUGS (13)
  1. TYSABRI [Suspect]
     Indication: MULTIPLE SCLEROSIS
     Route: 042
     Dates: start: 20130129, end: 20131204
  2. AMANTADINE HCL [Concomitant]
     Route: 048
     Dates: start: 20120418
  3. BACLOFEN [Concomitant]
     Route: 048
     Dates: start: 20121022
  4. VIT A AND VIT D [Concomitant]
     Route: 048
  5. DIAZEPAM [Concomitant]
     Route: 048
     Dates: start: 20120523
  6. DIVALPROEX SODIUM [Concomitant]
     Route: 048
     Dates: start: 20120418
  7. FLUOXETINE HCL [Concomitant]
     Route: 048
     Dates: start: 20120418
  8. LEVITRA [Concomitant]
     Route: 048
     Dates: start: 20130327
  9. METHYLPHENIDATE HCL [Concomitant]
     Route: 048
     Dates: start: 20130328
  10. OXYBUTYNIN HYDROCHLORIDE HCL [Concomitant]
     Route: 048
     Dates: start: 20121204
  11. PHENYTOIN SODIUM [Concomitant]
     Route: 048
     Dates: start: 20120418
  12. VESICARE [Concomitant]
     Route: 048
     Dates: start: 20131219
  13. VIT D3 [Concomitant]
     Route: 048

REACTIONS (5)
  - Muscular weakness [Unknown]
  - Balance disorder [Unknown]
  - Weight decreased [Unknown]
  - Neck pain [Unknown]
  - Fatigue [Unknown]
